FAERS Safety Report 11931370 (Version 1)
Quarter: 2016Q1

REPORT INFORMATION
  Report Type: Spontaneous
  Country: CA (occurrence: CA)
  Receive Date: 20160120
  Receipt Date: 20160120
  Transmission Date: 20160526
  Serious: Yes (Other)
  Sender: FDA-Public Use
  Company Number: CA-TEVA-624151USA

PATIENT
  Age: 15 Year
  Sex: Male

DRUGS (6)
  1. IFOSFAMIDE. [Concomitant]
     Active Substance: IFOSFAMIDE
     Indication: PRODUCT USED FOR UNKNOWN INDICATION
     Dosage: 3150 MILLIGRAM DAILY; 3150MG IV FOR 5 DAYS
     Route: 042
  2. ONDANSETRON [Concomitant]
     Active Substance: ONDANSETRON
     Indication: PRODUCT USED FOR UNKNOWN INDICATION
     Dosage: 24 MILLIGRAM DAILY; 8MG IV Q8H FOR 6 DAYS
     Route: 042
  3. TEVA-ETOPOSIDE [Suspect]
     Active Substance: ETOPOSIDE
     Dosage: STRENGTH IS 20MG/ML;170 MG IV DAILY FOR 5 DAYS; CYCLE CHANGED
     Route: 042
     Dates: start: 20150814, end: 20150818
  4. DEXAMETHASONE. [Concomitant]
     Active Substance: DEXAMETHASONE
     Indication: PRODUCT USED FOR UNKNOWN INDICATION
     Dosage: 12 MILLIGRAM DAILY; 4MG IV Q8H FOR 6 DAYS
     Route: 042
  5. MESNA. [Concomitant]
     Active Substance: MESNA
     Indication: PRODUCT USED FOR UNKNOWN INDICATION
     Dosage: 1900 MILLIGRAM DAILY; 1900MG IV FOR 5 DAYS
     Route: 042
  6. TEVA-ETOPOSIDE [Suspect]
     Active Substance: ETOPOSIDE
     Indication: PRODUCT USED FOR UNKNOWN INDICATION
     Dosage: STRENGTH IS 20MG/ML; CYCLE SCHEDULED FOR 13-AUG-2015 TO
     Route: 042
     Dates: start: 20150813, end: 20150813

REACTIONS (4)
  - Anaphylactic reaction [Recovered/Resolved]
  - Dyspnoea [Recovered/Resolved]
  - Flushing [Recovered/Resolved]
  - Anxiety [Recovered/Resolved]

NARRATIVE: CASE EVENT DATE: 20150813
